FAERS Safety Report 9694314 (Version 2)
Quarter: 2013Q4

REPORT INFORMATION
  Report Type: Spontaneous
  Country: US (occurrence: US)
  Receive Date: 20131118
  Receipt Date: 20131118
  Transmission Date: 20140711
  Serious: No
  Sender: FDA-Public Use
  Company Number: US-GILEAD-2007-0012986

PATIENT
  Sex: Female

DRUGS (7)
  1. LETAIRIS [Suspect]
     Indication: PULMONARY ARTERIAL HYPERTENSION
     Route: 065
     Dates: start: 20070729
  2. UNSPECIFIED ANTIBIOTIC [Concomitant]
     Indication: NASAL CONGESTION
     Route: 065
  3. FUROSEMIDE [Concomitant]
     Route: 065
  4. PREVACID [Concomitant]
     Route: 065
  5. COUMADINE [Concomitant]
     Route: 065
  6. ZOCOR [Concomitant]
     Route: 065
  7. OXYGEN [Concomitant]
     Route: 055

REACTIONS (5)
  - Somnolence [Not Recovered/Not Resolved]
  - Feeling abnormal [Not Recovered/Not Resolved]
  - Palpitations [Recovering/Resolving]
  - Oropharyngeal pain [Recovered/Resolved]
  - Upper respiratory tract congestion [Not Recovered/Not Resolved]
